FAERS Safety Report 9226083 (Version 2)
Quarter: 2013Q2

REPORT INFORMATION
  Report Type: Spontaneous
  Country: JP (occurrence: JP)
  Receive Date: 20130411
  Receipt Date: 20130411
  Transmission Date: 20140414
  Serious: Yes (Hospitalization, Other)
  Sender: FDA-Public Use
  Company Number: JP-BANPHARM-20131171

PATIENT
  Age: 48 Year
  Sex: Male

DRUGS (1)
  1. AMANTADINE [Suspect]

REACTIONS (5)
  - Renal failure acute [Recovered/Resolved]
  - Neuroleptic malignant syndrome [Recovered/Resolved]
  - Toxicity to various agents [Recovered/Resolved]
  - Paralysis [None]
  - Haemodialysis [None]
